FAERS Safety Report 7995243-4 (Version None)
Quarter: 2011Q4

REPORT INFORMATION
  Report Type: 
  Country: None (occurrence: None)
  Receive Date: 20111220
  Receipt Date: 20111220
  Transmission Date: 20120403
  Serious: Yes (Life-Threatening, Disabling)
  Sender: FDA-Public Use
  Company Number: None

PATIENT
  Age: 76 Year
  Sex: Female
  Weight: 72.2 kg

DRUGS (1)
  1. VANCOMYCIN HYCHLORIDE [Suspect]
     Indication: CELLULITIS
     Dosage: 40 CC

REACTIONS (8)
  - DYSPHONIA [None]
  - THROAT TIGHTNESS [None]
  - ANAPHYLACTIC REACTION [None]
  - DYSPNOEA [None]
  - WHEEZING [None]
  - PYREXIA [None]
  - CELLULITIS [None]
  - PAIN [None]
